FAERS Safety Report 6030350-7 (Version None)
Quarter: 2009Q1

REPORT INFORMATION
  Report Type: 
  Country: None (occurrence: None)
  Receive Date: 20090107
  Receipt Date: 20081231
  Transmission Date: 20090719
  Serious: Yes (Other)
  Sender: FDA-Public Use
  Company Number: US-ASTRAZENECA-2006UW27647

PATIENT
  Age: 19280 Day
  Sex: Female
  Weight: 80.7 kg

DRUGS (7)
  1. SEROQUEL [Suspect]
     Indication: MIGRAINE
     Dosage: 25 MG TO 200 MG
     Route: 048
     Dates: start: 20030105, end: 20050601
  2. SEROQUEL [Suspect]
     Indication: SLEEP DISORDER
     Dosage: 25 MG TO 200 MG
     Route: 048
     Dates: start: 20030105, end: 20050601
  3. SEROQUEL [Suspect]
     Indication: POST-TRAUMATIC STRESS DISORDER
     Dosage: 25 MG TO 200 MG
     Route: 048
     Dates: start: 20030105, end: 20050601
  4. LIPITOR [Concomitant]
     Route: 048
     Dates: start: 20050101
  5. XANAX [Concomitant]
  6. VISTARIL [Concomitant]
  7. AMBIEN [Concomitant]

REACTIONS (7)
  - BLOOD CHOLESTEROL INCREASED [None]
  - CATARACT [None]
  - DIABETES MELLITUS [None]
  - DIABETIC FOOT [None]
  - DIABETIC NEUROPATHY [None]
  - DRUG HYPERSENSITIVITY [None]
  - HYPERTENSION [None]
